FAERS Safety Report 16916042 (Version 1)
Quarter: 2019Q4

REPORT INFORMATION
  Report Type: Spontaneous
  Country: GB (occurrence: GB)
  Receive Date: 20191014
  Receipt Date: 20191014
  Transmission Date: 20200122
  Serious: Yes (Other)
  Sender: FDA-Public Use
  Company Number: GB-GALDERMA-GB19061335

PATIENT
  Age: 34 Year
  Sex: Female
  Weight: 75 kg

DRUGS (1)
  1. DOXYCYCLINE. [Suspect]
     Active Substance: DOXYCYCLINE
     Indication: URINARY TRACT INFECTION
     Route: 048
     Dates: start: 2014, end: 2014

REACTIONS (3)
  - Depression [Recovered/Resolved]
  - Product use in unapproved indication [Recovered/Resolved]
  - Negative thoughts [Recovered/Resolved]

NARRATIVE: CASE EVENT DATE: 2014
